FAERS Safety Report 12697586 (Version 1)
Quarter: 2016Q3

REPORT INFORMATION
  Report Type: Spontaneous
  Country: US (occurrence: None)
  Receive Date: 20160829
  Receipt Date: 20160829
  Transmission Date: 20161109
  Serious: Yes (Hospitalization, Other)
  Sender: FDA-Public Use
  Company Number: None

PATIENT
  Age: 49 Year
  Sex: Female
  Weight: 90.72 kg

DRUGS (8)
  1. OSPHENA [Suspect]
     Active Substance: OSPEMIFENE
     Indication: DYSPAREUNIA
     Dosage: 1 PILL ONCE DAILY ORAL
     Route: 048
     Dates: start: 201603, end: 20160807
  2. INVOKANA [Concomitant]
     Active Substance: CANAGLIFLOZIN
  3. WELLBUTRIN XL [Concomitant]
     Active Substance: BUPROPION HYDROCHLORIDE
  4. SYNTHROID [Concomitant]
     Active Substance: LEVOTHYROXINE SODIUM
  5. CLARITIN [Concomitant]
     Active Substance: LORATADINE
  6. KEPPRA XR [Concomitant]
     Active Substance: LEVETIRACETAM
  7. TYLENOL [Concomitant]
     Active Substance: ACETAMINOPHEN
  8. ALEVE [Concomitant]
     Active Substance: NAPROXEN SODIUM

REACTIONS (4)
  - Haemorrhagic stroke [None]
  - Muscle spasms [None]
  - Seizure [None]
  - Hypoaesthesia [None]

NARRATIVE: CASE EVENT DATE: 20160807
